FAERS Safety Report 6708826-6 (Version None)
Quarter: 2010Q2

REPORT INFORMATION
  Report Type: 
  Country: None (occurrence: None)
  Receive Date: 20100428
  Receipt Date: 20100412
  Transmission Date: 20101027
  Serious: Yes (Hospitalization)
  Sender: FDA-Public Use
  Company Number: D1001945

PATIENT
  Age: 70 Year
  Sex: Male
  Weight: 109 kg

DRUGS (17)
  1. BACLOFEN               TABLETS 20 MG (BACLOFEN) [Suspect]
     Indication: MUSCLE SPASMS
     Dosage: 2 IN 1 D, ORAL; 3 IN 1 D, ORAL
     Route: 048
     Dates: start: 20091209, end: 20091209
  2. BACLOFEN               TABLETS 20 MG (BACLOFEN) [Suspect]
     Indication: MUSCLE SPASMS
     Dosage: 2 IN 1 D, ORAL; 3 IN 1 D, ORAL
     Route: 048
     Dates: start: 20091210, end: 20091210
  3. AMEVIVE [Suspect]
     Indication: PSORIASIS
     Dosage: 1 IN 1 WK, IM; 1 IN 1 WK, IM
     Route: 030
     Dates: start: 20080215, end: 20080502
  4. AMEVIVE [Suspect]
     Indication: PSORIASIS
     Dosage: 1 IN 1 WK, IM; 1 IN 1 WK, IM
     Route: 030
     Dates: start: 20080711, end: 20081020
  5. ADAVIR       (FLUTICASONE PROPIONATE, SALMETEROL XINAFOATE) [Concomitant]
  6. SPIRIVA [Concomitant]
  7. SINGULAIR [Concomitant]
  8. LISINOPRIL [Concomitant]
  9. METOPROLOL (METOPROLOL) [Concomitant]
  10. MULTIVITAMIN [Concomitant]
  11. CALCIUM AND VITAMIN D (COLECALCIFEROL, CALCIUM) [Concomitant]
  12. LASIX [Concomitant]
  13. NEXIUM [Concomitant]
  14. PIROXICAM [Concomitant]
  15. SAW PALMETTO (SERENOA MAGNESIUM) [Concomitant]
  16. ALBUTEROL [Concomitant]
  17. METHOTREXATE (METOTREXATE) [Concomitant]

REACTIONS (7)
  - CEREBRAL ISCHAEMIA [None]
  - DYSARTHRIA [None]
  - ENCEPHALOPATHY [None]
  - MENTAL STATUS CHANGES [None]
  - MUSCLE TWITCHING [None]
  - SOMNOLENCE [None]
  - UNEVALUABLE EVENT [None]
